FAERS Safety Report 5179946-5 (Version None)
Quarter: 2006Q4

REPORT INFORMATION
  Report Type: 
  Country: None (occurrence: None)
  Receive Date: 20061211
  Receipt Date: 20061128
  Transmission Date: 20070319
  Serious: Yes (Other)
  Sender: FDA-Public Use
  Company Number: 2006147445

PATIENT
  Age: 65 Year
  Sex: Female

DRUGS (8)
  1. LYRICA [Suspect]
     Indication: ARTHRALGIA
     Dosage: 150 MG (75 MG, 2 IN 1 D)
     Dates: start: 20061001
  2. ESOMEPRAZOLE MAGNESIUM [Concomitant]
  3. IRBESARTAN [Concomitant]
  4. PINAVERIUM BROMIDE [Concomitant]
  5. ROSUVASTATIN [Concomitant]
  6. PIASCLEDINE                         (PERSEAE OLEUM, SOYA OIL) [Concomitant]
  7. COLCHICINE [Concomitant]
  8. CYPROTERONE ACETATE [Concomitant]

REACTIONS (4)
  - DYSSTASIA [None]
  - OEDEMA PERIPHERAL [None]
  - VISUAL DISTURBANCE [None]
  - WEIGHT INCREASED [None]
